FAERS Safety Report 21882072 (Version 1)
Quarter: 2023Q1

REPORT INFORMATION
  Report Type: Spontaneous
  Country: US (occurrence: US)
  Receive Date: 20230119
  Receipt Date: 20230119
  Transmission Date: 20230417
  Serious: Yes (Hospitalization)
  Sender: FDA-Public Use
  Company Number: US-drreddys-LIT/USA/23/0159921

PATIENT
  Age: 27 Year
  Sex: Male

DRUGS (5)
  1. RISPERIDONE [Suspect]
     Active Substance: RISPERIDONE
     Indication: Mania
  2. PREGABALIN [Suspect]
     Active Substance: PREGABALIN
     Indication: Epilepsy
  3. ZONISAMIDE [Suspect]
     Active Substance: ZONISAMIDE
     Indication: Epilepsy
  4. VALPROIC ACID [Suspect]
     Active Substance: VALPROIC ACID
     Indication: Epilepsy
     Dosage: HIGH DOSE
  5. LACOSAMIDE [Suspect]
     Active Substance: LACOSAMIDE
     Indication: Epilepsy

REACTIONS (1)
  - Drug ineffective [Unknown]
